FAERS Safety Report 7116754-X (Version None)
Quarter: 2010Q4

REPORT INFORMATION
  Report Type: 
  Country: None (occurrence: None)
  Receive Date: 20101122
  Receipt Date: 20101110
  Transmission Date: 20110411
  Serious: Yes (Other)
  Sender: FDA-Public Use
  Company Number: GXKR2010JP11982

PATIENT
  Age: 71 Year
  Sex: Male

DRUGS (4)
  1. RIFAMPICIN [Suspect]
     Dosage: UNK
     Route: 065
     Dates: start: 20061201
  2. ESANBUTOL (NGX) [Suspect]
     Dosage: UNK
     Route: 065
     Dates: start: 20061201
  3. ISONIAZID [Suspect]
     Indication: PULMONARY TUBERCULOSIS
     Dosage: UNK
     Route: 065
     Dates: start: 20061201
  4. PYRAZINAMIDE [Suspect]
     Indication: PULMONARY TUBERCULOSIS
     Dosage: UNK
     Route: 065
     Dates: start: 20061201

REACTIONS (1)
  - ORGANISING PNEUMONIA [None]
